FAERS Safety Report 17818843 (Version 1)
Quarter: 2020Q2

REPORT INFORMATION
  Report Type: Spontaneous
  Country: IE (occurrence: IE)
  Receive Date: 20200522
  Receipt Date: 20200522
  Transmission Date: 20200714
  Serious: Yes (Disabling, Other)
  Sender: FDA-Public Use
  Company Number: NVSC2020IE140366

PATIENT
  Age: 5 Month
  Sex: Female

DRUGS (7)
  1. MELPHALAN. [Suspect]
     Active Substance: MELPHALAN
     Dosage: 1ST CYCLE: 4 MG
     Route: 013
  2. MELPHALAN. [Suspect]
     Active Substance: MELPHALAN
     Dosage: 3RD CYCLE: 7.5 MG
     Route: 013
  3. MELPHALAN. [Suspect]
     Active Substance: MELPHALAN
     Dosage: 2ND CYCLE: 5 MG
     Route: 013
  4. MELPHALAN. [Suspect]
     Active Substance: MELPHALAN
     Indication: CONGENITAL RETINOBLASTOMA
     Dosage: 1ST CYCLE: 3 MG, BID
     Route: 013
  5. TOPOTECAN [Suspect]
     Active Substance: TOPOTECAN HYDROCHLORIDE
     Dosage: 2ND CYCLE: 1 MG
     Route: 013
  6. TOPOTECAN [Suspect]
     Active Substance: TOPOTECAN HYDROCHLORIDE
     Dosage: 3RD CYCLE: 1.5 MG
     Route: 013
  7. TOPOTECAN [Suspect]
     Active Substance: TOPOTECAN HYDROCHLORIDE
     Indication: CONGENITAL RETINOBLASTOMA
     Dosage: 1ST CYCLE: 0.3 MG, BID
     Route: 013

REACTIONS (6)
  - Rash [Unknown]
  - Paralysis [Not Recovered/Not Resolved]
  - Off label use [Unknown]
  - Swelling of eyelid [Unknown]
  - Eyelid ptosis [Not Recovered/Not Resolved]
  - Product use issue [Unknown]
